FAERS Safety Report 7646977-2 (Version None)
Quarter: 2011Q3

REPORT INFORMATION
  Report Type: 
  Country: None (occurrence: None)
  Receive Date: 20110729
  Receipt Date: 20110729
  Transmission Date: 20111222
  Serious: Yes (Other)
  Sender: FDA-Public Use
  Company Number: None

PATIENT
  Sex: Female
  Weight: 78.0187 kg

DRUGS (1)
  1. PRADAXA [Suspect]
     Indication: BLOOD DISORDER
     Dosage: 150 MG 1 A DAY PILL
     Dates: start: 20110202, end: 20110404

REACTIONS (4)
  - DRUG EFFECT DECREASED [None]
  - PRODUCT QUALITY ISSUE [None]
  - ABDOMINAL PAIN UPPER [None]
  - SENSORY DISTURBANCE [None]
